FAERS Safety Report 17675821 (Version 1)
Quarter: 2020Q2

REPORT INFORMATION
  Report Type: Spontaneous
  Country: US (occurrence: US)
  Receive Date: 20200415
  Receipt Date: 20200415
  Transmission Date: 20200714
  Serious: Yes (Other)
  Sender: FDA-Public Use
  Company Number: None

PATIENT
  Age: 65 Year
  Sex: Female

DRUGS (16)
  1. BUPROPION. [Concomitant]
     Active Substance: BUPROPION
  2. PROMETHAZINE-DM [Concomitant]
  3. ALVESCO HFA [Concomitant]
  4. OPSUMIT [Suspect]
     Active Substance: MACITENTAN
     Indication: PULMONARY ARTERIAL HYPERTENSION
     Route: 048
     Dates: start: 201602
  5. VOLTAREN TOP GEL [Concomitant]
  6. MVI [Concomitant]
     Active Substance: VITAMINS
  7. TRIAMCINOLONE TOP OINT [Concomitant]
  8. ATORVASTATIN [Concomitant]
     Active Substance: ATORVASTATIN
  9. ALBUTEROL HFA{DOCUSATE SODIUM [Concomitant]
  10. SILDENAFIL. [Concomitant]
     Active Substance: SILDENAFIL
  11. FLUCONAZOLE. [Concomitant]
     Active Substance: FLUCONAZOLE
  12. FERROUS SULFATE. [Concomitant]
     Active Substance: FERROUS SULFATE
  13. BIOTIN [Concomitant]
     Active Substance: BIOTIN
  14. WARFARIN [Concomitant]
     Active Substance: WARFARIN
  15. ACLOVATE TOP OINT [Concomitant]
  16. OMEPRAZOLE. [Concomitant]
     Active Substance: OMEPRAZOLE

REACTIONS (4)
  - Chest pain [None]
  - Gastrooesophageal reflux disease [None]
  - Pain [None]
  - Gastritis [None]

NARRATIVE: CASE EVENT DATE: 20200309
